FAERS Safety Report 7247055-7 (Version None)
Quarter: 2011Q1

REPORT INFORMATION
  Report Type: 
  Country: None (occurrence: None)
  Receive Date: 20110127
  Receipt Date: 20110120
  Transmission Date: 20110831
  Serious: Yes (Other)
  Sender: FDA-Public Use
  Company Number: GB-JNJFOC-20101207992

PATIENT
  Age: 80 Year
  Sex: Male

DRUGS (4)
  1. UNKNOWN MULTIPLE MEDICATION [Concomitant]
  2. MICONAZOLE [Suspect]
     Route: 061
  3. WARFARIN SODIUM [Interacting]
     Indication: ILL-DEFINED DISORDER
     Route: 065
  4. MICONAZOLE [Suspect]
     Indication: ILL-DEFINED DISORDER
     Route: 061

REACTIONS (2)
  - CEREBROVASCULAR ACCIDENT [None]
  - DRUG INTERACTION [None]
